FAERS Safety Report 6067892-4 (Version None)
Quarter: 2009Q1

REPORT INFORMATION
  Report Type: 
  Country: None (occurrence: None)
  Receive Date: 20090203
  Receipt Date: 20090121
  Transmission Date: 20090719
  Serious: Yes (Other)
  Sender: FDA-Public Use
  Company Number: 159035

PATIENT
  Age: 65 Year
  Sex: Male

DRUGS (3)
  1. CIPROFLOXACIN [Suspect]
     Indication: LUNG INFECTION
  2. IRBESARTAN [Concomitant]
  3. SIMVASTATIN [Concomitant]

REACTIONS (5)
  - ALANINE AMINOTRANSFERASE INCREASED [None]
  - GAMMA-GLUTAMYLTRANSFERASE INCREASED [None]
  - PORPHYRIA NON-ACUTE [None]
  - PSEUDOPORPHYRIA [None]
  - SKIN FRAGILITY [None]
